FAERS Safety Report 25827293 (Version 3)
Quarter: 2025Q4

REPORT INFORMATION
  Report Type: Spontaneous
  Country: US (occurrence: US)
  Receive Date: 20250920
  Receipt Date: 20251023
  Transmission Date: 20260119
  Serious: Yes (Other)
  Sender: ABBVIE
  Company Number: US-ABBVIE-6468195

PATIENT
  Sex: Male

DRUGS (27)
  1. LUMIGAN [Suspect]
     Active Substance: BIMATOPROST
     Indication: Glaucoma
     Route: 047
     Dates: start: 20210715
  2. LUMIGAN [Suspect]
     Active Substance: BIMATOPROST
     Dosage: LUMIGAN 0.01% 7.5 ML, ROA: OPHTHALMIC
     Route: 065
     Dates: start: 20250110, end: 20250331
  3. LUMIGAN [Suspect]
     Active Substance: BIMATOPROST
     Dosage: LUMIGAN 0.01% 7.5 ML, ROA: OPHTHALMIC
     Route: 065
     Dates: start: 20241011, end: 20250109
  4. LUMIGAN [Suspect]
     Active Substance: BIMATOPROST
     Dosage: DOSES SHORT : 2, ROA: OPHTHALMIC
     Route: 065
     Dates: start: 20220811, end: 20220912
  5. LUMIGAN [Suspect]
     Active Substance: BIMATOPROST
     Dosage: SHORT DOSE : 4, ROA: OPHTHALMIC
     Route: 065
     Dates: start: 20220913, end: 20221011
  6. LUMIGAN [Suspect]
     Active Substance: BIMATOPROST
     Dosage: SHORT DOSE : 4, ROA: OPHTHALMIC
     Route: 065
     Dates: start: 20221012, end: 20221110
  7. LUMIGAN [Suspect]
     Active Substance: BIMATOPROST
     Dosage: PLUS 2 DOSES, ROA: OPHTHALMIC
     Route: 065
     Dates: start: 20221111, end: 20221212
  8. LUMIGAN [Suspect]
     Active Substance: BIMATOPROST
     Dosage: ROA: OPHTHALMIC
     Route: 065
     Dates: start: 20221213, end: 20230113
  9. LUMIGAN [Suspect]
     Active Substance: BIMATOPROST
     Dosage: PLUS 4 DOSES, ROA: OPHTHALMIC
     Route: 065
     Dates: start: 20230114, end: 20230216
  10. LUMIGAN [Suspect]
     Active Substance: BIMATOPROST
     Dosage: SHORT DOSE: 4, ROA: OPHTHALMIC
     Route: 065
     Dates: start: 20230217, end: 20230317
  11. LUMIGAN [Suspect]
     Active Substance: BIMATOPROST
     Dosage: SHORT DOSE : 4, ROA: OPHTHALMIC
     Route: 065
     Dates: start: 20230318, end: 20230415
  12. LUMIGAN [Suspect]
     Active Substance: BIMATOPROST
     Dosage: PLUS 2 DOSES, ROA: OPHTHALMIC
     Route: 065
     Dates: start: 20230416, end: 20230517
  13. LUMIGAN [Suspect]
     Active Substance: BIMATOPROST
     Dosage: PLUS 2 DOSES, ROA: OPHTHALMIC
     Route: 065
     Dates: start: 20230518, end: 20230618
  14. LUMIGAN [Suspect]
     Active Substance: BIMATOPROST
     Dosage: PLUS 4 DOSES, ROA: OPHTHALMIC
     Route: 065
     Dates: start: 20230618, end: 20230720
  15. LUMIGAN [Suspect]
     Active Substance: BIMATOPROST
     Dosage: ROA: OPHTHALMIC
     Route: 065
     Dates: start: 20230721, end: 20230821
  16. LUMIGAN [Suspect]
     Active Substance: BIMATOPROST
     Dosage: ROA: OPHTHALMIC
     Route: 065
     Dates: start: 20230822, end: 20230922
  17. LUMIGAN [Suspect]
     Active Substance: BIMATOPROST
     Dosage: SHORT DOSE : 8, ROA: OPHTHALMIC
     Route: 065
     Dates: start: 20230923, end: 20231019
  18. LUMIGAN [Suspect]
     Active Substance: BIMATOPROST
     Dosage: SHORT DOSE: 2, ROA: OPHTHALMIC
     Route: 065
     Dates: start: 20231020, end: 20231118
  19. LUMIGAN [Suspect]
     Active Substance: BIMATOPROST
     Dosage: SHORT DOSE: 4, ROA: OPHTHALMIC
     Route: 065
     Dates: start: 20231119, end: 20231217
  20. LUMIGAN [Suspect]
     Active Substance: BIMATOPROST
     Dosage: SHORT DOSE: 4, ROA: OPHTHALMIC
     Route: 065
     Dates: start: 20231218, end: 20240115
  21. LUMIGAN [Suspect]
     Active Substance: BIMATOPROST
     Dosage: PLUS 2 DOSES, ROA: OPHTHALMIC
     Route: 065
     Dates: start: 20240116, end: 20240217
  22. LUMIGAN [Suspect]
     Active Substance: BIMATOPROST
     Dosage: PLUS 3 DOSES, ROA: OPHTHALMIC
     Route: 065
     Dates: start: 20240218, end: 20240317
  23. LUMIGAN [Suspect]
     Active Substance: BIMATOPROST
     Dosage: PLUS 1 DOSE, ROA: OPHTHALMIC
     Route: 065
     Dates: start: 20240318, end: 20240408
  24. LUMIGAN [Suspect]
     Active Substance: BIMATOPROST
     Dosage: SHORT DOSE: 3, ROA: OPHTHALMIC
     Route: 065
     Dates: start: 20240418, end: 20240520
  25. LUMIGAN [Suspect]
     Active Substance: BIMATOPROST
     Dosage: PLUS 1 DOSE, ROA: OPHTHALMIC
     Route: 065
     Dates: start: 20240521, end: 20240620
  26. LUMIGAN [Suspect]
     Active Substance: BIMATOPROST
     Dosage: PLUS 1 DOSE, ROA: OPHTHALMIC
     Route: 065
     Dates: start: 20240621, end: 20240721
  27. LUMIGAN [Suspect]
     Active Substance: BIMATOPROST
     Dosage: SHORT DOSE: 21, ROA: OPHTHALMIC
     Route: 065
     Dates: start: 20240722, end: 20241011

REACTIONS (2)
  - Cataract [Unknown]
  - Product packaging quantity issue [Not Recovered/Not Resolved]

NARRATIVE: CASE EVENT DATE: 20220101
